FAERS Safety Report 8560826-X (Version None)
Quarter: 2012Q3

REPORT INFORMATION
  Report Type: 
  Country: None (occurrence: None)
  Receive Date: 20120727
  Receipt Date: 20120727
  Transmission Date: 20120928
  Serious: Yes (Hospitalization)
  Sender: FDA-Public Use
  Company Number: None

PATIENT
  Age: 81 Year
  Sex: Female
  Weight: 86.4 kg

DRUGS (10)
  1. CYANOCOBALAMIN [Concomitant]
  2. ASPIRIN [Concomitant]
  3. DORIPENEM [Suspect]
     Indication: URINARY TRACT INFECTION
     Dosage: 250 MG Q12H IVPB RECENT
     Route: 042
  4. COUMADIN [Concomitant]
  5. BENADRYL [Concomitant]
  6. VENTOLIN [Concomitant]
  7. PROVENTIL [Concomitant]
  8. TYLENOL [Concomitant]
  9. VISIPAQUE [Suspect]
     Indication: SCAN WITH CONTRAST
     Dosage: 100 M IV RECENT
     Route: 042
  10. **DRUG ILLEGIBLE** [Concomitant]

REACTIONS (3)
  - PAIN IN EXTREMITY [None]
  - RENAL FAILURE ACUTE [None]
  - DERMATITIS EXFOLIATIVE [None]
